FAERS Safety Report 8422567 (Version 4)
Quarter: 2013Q2

REPORT INFORMATION
  Report Type: Report from Study
  Country: IL (occurrence: IL)
  Receive Date: 20120223
  Receipt Date: 20130411
  Transmission Date: 20140414
  Serious: Yes (Hospitalization)
  Sender: FDA-Public Use
  Company Number: IL-ROCHE-1040013

PATIENT
  Age: 45 Year
  Sex: Male
  Weight: 92 kg

DRUGS (3)
  1. PEG-INTERFERON ALFA 2A [Suspect]
     Indication: CHRONIC HEPATITIS C
     Dosage: LAST DOSE PRIOR TO SAE: 09/FEB/2012
     Route: 058
     Dates: start: 20110613
  2. RIBAVIRIN [Suspect]
     Indication: CHRONIC HEPATITIS C
     Dosage: LAST DOSE PRIOR TO SAE: 10/FEB/2012
     Route: 048
     Dates: start: 20110613
  3. CYMBALTA [Concomitant]
     Route: 065
     Dates: start: 20110526

REACTIONS (2)
  - Hernia [Unknown]
  - Urinary tract infection [Recovered/Resolved]
